FAERS Safety Report 4714126-6 (Version None)
Quarter: 2005Q2

REPORT INFORMATION
  Report Type: 
  Country: None (occurrence: None)
  Receive Date: 20050630
  Receipt Date: 20050324
  Transmission Date: 20051028
  Serious: Yes (Hospitalization)
  Sender: FDA-Public Use
  Company Number: 399655

PATIENT
  Age: 48 Year
  Sex: Female

DRUGS (5)
  1. COPEGUS [Suspect]
     Indication: HEPATITIS C
     Dosage: 1000 MG DAILY ORAL
     Route: 048
     Dates: start: 20040625
  2. PEG-INTRON [Suspect]
     Indication: HEPATITIS C
     Dosage: SUBCUTANEOUS
     Route: 058
     Dates: start: 20040625
  3. EFFEXOR [Concomitant]
  4. KLONOPIN [Concomitant]
  5. TYLENOL [Concomitant]

REACTIONS (2)
  - BONE PAIN [None]
  - PYREXIA [None]
